FAERS Safety Report 5493577-9 (Version None)
Quarter: 2007Q4

REPORT INFORMATION
  Report Type: 
  Country: None (occurrence: None)
  Receive Date: 20071023
  Receipt Date: 20071015
  Transmission Date: 20080405
  Serious: Yes (Hospitalization)
  Sender: FDA-Public Use
  Company Number: FR-AVENTIS-200711685FR

PATIENT
  Age: 82 Year
  Sex: Female
  Weight: 60 kg

DRUGS (8)
  1. LOVENOX [Suspect]
     Route: 058
     Dates: start: 20070126, end: 20070201
  2. KARDEGIC                           /00002703/ [Suspect]
     Route: 048
  3. KARDEGIC                           /00002703/ [Suspect]
     Route: 048
  4. PREVISCAN                          /00789001/ [Concomitant]
     Indication: PHLEBITIS
     Route: 048
     Dates: start: 20070129, end: 20070201
  5. EUPRESSYL                          /00631801/ [Concomitant]
     Route: 048
  6. SELOKEN                            /00376902/ [Concomitant]
     Route: 048
  7. LIPANTHYL [Concomitant]
     Route: 048
  8. OMEPRAZOLE [Concomitant]
     Route: 048

REACTIONS (4)
  - BACK PAIN [None]
  - EXTRADURAL HAEMATOMA [None]
  - PARALYSIS FLACCID [None]
  - URINARY RETENTION [None]
